FAERS Safety Report 10883607 (Version 1)
Quarter: 2015Q1

REPORT INFORMATION
  Report Type: Report from Study
  Country: IT (occurrence: IT)
  Receive Date: 20150303
  Receipt Date: 20150303
  Transmission Date: 20150721
  Serious: Yes (Death, Other)
  Sender: FDA-Public Use
  Company Number: IT-B.I. PHARMACEUTICALS,INC./RIDGEFIELD-2015-BI-10165GD

PATIENT
  Age: 87 Year
  Sex: Male

DRUGS (3)
  1. PRADAXA [Suspect]
     Active Substance: DABIGATRAN ETEXILATE MESYLATE
     Indication: PRODUCT USED FOR UNKNOWN INDICATION
     Route: 065
  2. SALSALATE. [Concomitant]
     Active Substance: SALSALATE
     Indication: PRODUCT USED FOR UNKNOWN INDICATION
     Route: 065
  3. ATORVASTATIN [Concomitant]
     Active Substance: ATORVASTATIN
     Indication: PRODUCT USED FOR UNKNOWN INDICATION
     Route: 065

REACTIONS (19)
  - Activated partial thromboplastin time prolonged [Unknown]
  - International normalised ratio increased [Unknown]
  - Bradycardia [Unknown]
  - Hepatic failure [Fatal]
  - Rib fracture [Unknown]
  - Ecchymosis [Unknown]
  - Craniocerebral injury [Unknown]
  - Radius fracture [Unknown]
  - Hypotension [Unknown]
  - Dialysis [Unknown]
  - Clavicle fracture [Unknown]
  - Haemothorax [Unknown]
  - Metabolic acidosis [Unknown]
  - Haemoglobin decreased [Unknown]
  - Haematocrit decreased [Unknown]
  - Disseminated intravascular coagulation [Unknown]
  - Haemorrhagic anaemia [Unknown]
  - Road traffic accident [Unknown]
  - Acute kidney injury [Unknown]

NARRATIVE: CASE EVENT DATE: 20120102
